FAERS Safety Report 8849607 (Version 1)
Quarter: 2012Q4

REPORT INFORMATION
  Report Type: 
  Country: US (occurrence: US)
  Receive Date: 20121019
  Receipt Date: 20121019
  Transmission Date: 20130627
  Serious: No
  Sender: FDA-Public Use
  Company Number: US-TEVA-365334USA

PATIENT
  Age: 61 None
  Sex: Male
  Weight: 76.73 kg

DRUGS (3)
  1. AZILECT [Suspect]
     Indication: PARKINSON^S DISEASE
     Dosage: 1 Milligram Daily; 1 mg
     Route: 048
  2. CRESTOR [Concomitant]
     Indication: HYPERLIPIDAEMIA
     Dosage: 10 Milligram Daily; 10 mg
     Route: 048
  3. CLONAZEPAM [Concomitant]
     Indication: INSOMNIA
     Dosage: .5 Milligram Daily; 0.5 mg x 3
     Route: 048

REACTIONS (3)
  - Urticaria [Recovered/Resolved]
  - Vomiting [Recovered/Resolved]
  - Decreased appetite [Not Recovered/Not Resolved]
